FAERS Safety Report 5313060-0 (Version None)
Quarter: 2007Q2

REPORT INFORMATION
  Report Type: 
  Country: None (occurrence: None)
  Receive Date: 20070430
  Receipt Date: 20070418
  Transmission Date: 20071010
  Serious: Yes (Other)
  Sender: FDA-Public Use
  Company Number: US-PFIZER INC-2007031718

PATIENT
  Sex: Female
  Weight: 75 kg

DRUGS (9)
  1. CHANTIX [Suspect]
     Indication: SMOKING CESSATION THERAPY
     Route: 048
     Dates: start: 20070307, end: 20070411
  2. NORVASC [Concomitant]
  3. COZAAR [Concomitant]
  4. CLONIDINE [Concomitant]
  5. LASIX [Concomitant]
  6. ZOCOR [Concomitant]
  7. KEPPRA [Concomitant]
  8. TRAZODONE HCL [Concomitant]
  9. PRILOSEC [Concomitant]

REACTIONS (3)
  - ANOREXIA [None]
  - NAUSEA [None]
  - WEIGHT DECREASED [None]
